FAERS Safety Report 6691313-1 (Version None)
Quarter: 2010Q2

REPORT INFORMATION
  Report Type: 
  Country: None (occurrence: None)
  Receive Date: 20100419
  Receipt Date: 20100403
  Transmission Date: 20101027
  Serious: Yes (Other)
  Sender: FDA-Public Use
  Company Number: IPC201004-000111

PATIENT
  Age: 60 Year
  Sex: Female

DRUGS (1)
  1. CHLOROQUINE PHOSPHATE (CHLOROQUINE PHOSPHATE) (CHLOROQUINE PHOSPHATE) [Suspect]
     Indication: RHEUMATOID ARTHRITIS

REACTIONS (4)
  - MACULOPATHY [None]
  - OPHTHALMOLOGICAL EXAMINATION ABNORMAL [None]
  - SCOTOMA [None]
  - VISUAL FIELD DEFECT [None]
